FAERS Safety Report 4696928-8 (Version None)
Quarter: 2005Q2

REPORT INFORMATION
  Report Type: 
  Country: None (occurrence: None)
  Receive Date: 20050622
  Receipt Date: 20050411
  Transmission Date: 20051028
  Serious: Yes (Death, Hospitalization, Other)
  Sender: FDA-Public Use
  Company Number: PHBS2005JP05141

PATIENT
  Age: 63 Year
  Sex: Female

DRUGS (5)
  1. NEORAL [Suspect]
     Indication: DERMATOMYOSITIS
     Dosage: 200 MG/D
     Route: 048
     Dates: start: 20050319, end: 20050404
  2. DORNER [Concomitant]
     Route: 048
  3. LIPITOR [Concomitant]
     Route: 048
  4. BAKTAR [Concomitant]
     Route: 048
  5. RINDERON [Concomitant]
     Route: 065

REACTIONS (4)
  - CARDIAC FAILURE [None]
  - CONDITION AGGRAVATED [None]
  - RENAL IMPAIRMENT [None]
  - THROMBOTIC THROMBOCYTOPENIC PURPURA [None]
